FAERS Safety Report 7837275-2 (Version None)
Quarter: 2011Q4

REPORT INFORMATION
  Report Type: 
  Country: None (occurrence: None)
  Receive Date: 20111024
  Receipt Date: 20110909
  Transmission Date: 20120403
  Serious: No
  Sender: FDA-Public Use
  Company Number: US-ABBOTT-11P-163-0852665-00

PATIENT
  Sex: Male
  Weight: 48.124 kg

DRUGS (2)
  1. LUPRON DEPOT [Suspect]
     Indication: PROSTATE CANCER
     Route: 030
     Dates: start: 20110902, end: 20110902
  2. LUPRON DEPOT [Suspect]
     Route: 050
     Dates: start: 20110909, end: 20110909

REACTIONS (1)
  - INCORRECT DOSE ADMINISTERED [None]
